FAERS Safety Report 7084089-X (Version None)
Quarter: 2010Q4

REPORT INFORMATION
  Report Type: 
  Country: None (occurrence: None)
  Receive Date: 20101026
  Receipt Date: 20101019
  Transmission Date: 20110411
  Serious: Yes (Death, Hospitalization, Other)
  Sender: FDA-Public Use
  Company Number: 2010AC000308

PATIENT
  Age: 76 Year
  Sex: Male

DRUGS (18)
  1. DIGOXIN [Suspect]
     Indication: PRODUCT USED FOR UNKNOWN INDICATION
     Dosage: PO
     Route: 048
     Dates: start: 20070101, end: 20080401
  2. DIGOXIN [Suspect]
     Indication: PRODUCT USED FOR UNKNOWN INDICATION
     Dosage: 0.125 MG;QD;PO
     Route: 048
     Dates: start: 20071216, end: 20080426
  3. FOLIC ACID [Concomitant]
  4. FINASTERIDE [Concomitant]
  5. ADVAIR [Concomitant]
  6. KLOR-CON [Concomitant]
  7. FUROSEMIDE [Concomitant]
  8. ACIPHEX [Concomitant]
  9. LIPITOR [Concomitant]
  10. ALIMTA [Concomitant]
  11. DILTIAZEM [Concomitant]
  12. CARDIZEM [Concomitant]
  13. NEBULIZERS [Concomitant]
  14. BLOOD TRANSFUSIONS [Concomitant]
  15. PROTONIX [Concomitant]
  16. METFORMIN HCL [Concomitant]
  17. STEROIDS [Concomitant]
  18. OXYGEN [Concomitant]

REACTIONS (19)
  - ACUTE RESPIRATORY FAILURE [None]
  - ATAXIA [None]
  - ATRIAL FIBRILLATION [None]
  - CHRONIC OBSTRUCTIVE PULMONARY DISEASE [None]
  - CONDITION AGGRAVATED [None]
  - DIABETES MELLITUS [None]
  - DIZZINESS POSTURAL [None]
  - DRUG LEVEL BELOW THERAPEUTIC [None]
  - ECONOMIC PROBLEM [None]
  - FATIGUE [None]
  - INCORRECT DOSE ADMINISTERED [None]
  - INJURY [None]
  - INTERSTITIAL LUNG DISEASE [None]
  - LETHARGY [None]
  - METASTASES TO LIVER [None]
  - PLEURAL EFFUSION [None]
  - TACHYARRHYTHMIA [None]
  - TREATMENT NONCOMPLIANCE [None]
  - UNEVALUABLE EVENT [None]
